FAERS Safety Report 19407647 (Version 1)
Quarter: 2021Q2

REPORT INFORMATION
  Report Type: Report from Study
  Country: None (occurrence: AU)
  Receive Date: 20210612
  Receipt Date: 20210612
  Transmission Date: 20210717
  Serious: Yes (Other)
  Sender: FDA-Public Use
  Company Number: AU-ABBVIE-21K-008-3946263-00

PATIENT
  Sex: Male

DRUGS (1)
  1. IBRUTINIB [Suspect]
     Active Substance: IBRUTINIB
     Indication: MANTLE CELL LYMPHOMA
     Route: 048
     Dates: start: 20161201

REACTIONS (4)
  - Gastrooesophageal reflux disease [Recovered/Resolved]
  - Gastric ulcer [Recovered/Resolved]
  - Oesophageal ulcer [Recovered/Resolved]
  - Hiatus hernia [Unknown]
